FAERS Safety Report 8581232-8 (Version None)
Quarter: 2012Q3

REPORT INFORMATION
  Report Type: 
  Country: None (occurrence: None)
  Receive Date: 20120809
  Receipt Date: 20120803
  Transmission Date: 20120928
  Serious: Yes (Other)
  Sender: FDA-Public Use
  Company Number: PHHY2012BR068006

PATIENT
  Sex: Male

DRUGS (3)
  1. DIOVAN HCT [Suspect]
     Indication: HYPERTENSION
     Dosage: 160 MG VALS/12.5 MG HCT, QD
     Route: 048
  2. DIOVAN HCT [Suspect]
     Dosage: 320 MG VALS/25 MG HCT, QD
     Route: 048
  3. DIOVAN HCT [Suspect]
     Dosage: 160 MG VALS/25 MG HCT, QD
     Route: 048

REACTIONS (3)
  - DIABETES MELLITUS [None]
  - HYPERTENSION [None]
  - DRUG INEFFECTIVE [None]
